FAERS Safety Report 26134772 (Version 1)
Quarter: 2025Q4

REPORT INFORMATION
  Report Type: Spontaneous
  Country: MX (occurrence: MX)
  Receive Date: 20251209
  Receipt Date: 20251209
  Transmission Date: 20260117
  Serious: Yes (Other)
  Sender: ROCHE
  Company Number: MX-ROCHE-10000451534

PATIENT
  Age: 50 Year
  Sex: Female
  Weight: 65.6 kg

DRUGS (7)
  1. PHESGO [Suspect]
     Active Substance: HYALURONIDASE-ZZXF\PERTUZUMAB\TRASTUZUMAB
     Indication: Breast cancer
     Route: 058
  2. PHESGO [Suspect]
     Active Substance: HYALURONIDASE-ZZXF\PERTUZUMAB\TRASTUZUMAB
     Route: 058
     Dates: start: 20211121
  3. PERTUZUMAB [Suspect]
     Active Substance: PERTUZUMAB
     Indication: Breast cancer
  4. PERTUZUMAB [Suspect]
     Active Substance: PERTUZUMAB
  5. TRASTUZUMAB [Suspect]
     Active Substance: TRASTUZUMAB
     Indication: Breast cancer
  6. CARBOPLATIN [Concomitant]
     Active Substance: CARBOPLATIN
  7. DOCETAXEL [Concomitant]
     Active Substance: DOCETAXEL

REACTIONS (2)
  - Hepatic cancer [Not Recovered/Not Resolved]
  - Breast cancer recurrent [Not Recovered/Not Resolved]

NARRATIVE: CASE EVENT DATE: 20250725
